FAERS Safety Report 17470724 (Version 13)
Quarter: 2022Q3

REPORT INFORMATION
  Report Type: Report from Study
  Country: JP (occurrence: JP)
  Receive Date: 20200228
  Receipt Date: 20220912
  Transmission Date: 20221027
  Serious: Yes (Hospitalization, Other)
  Sender: FDA-Public Use
  Company Number: JP-ALEXION PHARMACEUTICALS INC.-A202002119

PATIENT
  Age: 47 Year
  Sex: Male
  Weight: 70 kg

DRUGS (11)
  1. ULTOMIRIS [Suspect]
     Active Substance: RAVULIZUMAB-CWVZ
     Indication: Paroxysmal nocturnal haemoglobinuria
     Dosage: 2700 MG, SINGLE
     Route: 042
     Dates: start: 20191108, end: 20191108
  2. ULTOMIRIS [Suspect]
     Active Substance: RAVULIZUMAB-CWVZ
     Dosage: 3300 MG, ONCE EVERY TWO MONTHS
     Route: 042
     Dates: start: 20191122
  3. FEBUXOSTAT [Concomitant]
     Active Substance: FEBUXOSTAT
     Indication: Hyperuricaemia
     Dosage: 10 MG, QD
     Route: 048
     Dates: start: 20181130, end: 20201023
  4. FEBUXOSTAT [Concomitant]
     Active Substance: FEBUXOSTAT
     Indication: Blood uric acid increased
     Dosage: 20 MG, QD
     Route: 048
     Dates: start: 20201024
  5. HACHIAZULE                         /00317302/ [Concomitant]
     Indication: Prophylaxis
     Dosage: 2 G, TID
     Route: 065
     Dates: start: 20200210, end: 20200304
  6. HIRUDOID                           /00723701/ [Concomitant]
     Indication: Dry skin prophylaxis
     Dosage: APPROPRIATE AMOUNT,UNK
     Route: 065
     Dates: start: 20200219, end: 20200325
  7. LOXOPROFEN [Concomitant]
     Active Substance: LOXOPROFEN
     Indication: Prophylaxis
     Dosage: 60 MG, PRN
     Route: 048
     Dates: start: 20201023
  8. LOXOPROFEN [Concomitant]
     Active Substance: LOXOPROFEN
     Indication: Gonococcal infection
     Dosage: UNK
     Route: 048
  9. LOXOPROFEN [Concomitant]
     Active Substance: LOXOPROFEN
     Indication: Bacterial sepsis
  10. VONOPRAZAN FUMARATE [Concomitant]
     Active Substance: VONOPRAZAN FUMARATE
     Indication: Prophylaxis
     Dosage: 10 MG, QD
     Route: 048
     Dates: start: 20200208, end: 20200412
  11. TADALAFIL [Concomitant]
     Active Substance: TADALAFIL
     Indication: Benign prostatic hyperplasia
     Dosage: 2.5 MG, QD
     Route: 048
     Dates: start: 20150807, end: 20191219

REACTIONS (12)
  - Gonococcal infection [Recovering/Resolving]
  - Bacterial sepsis [Recovering/Resolving]
  - Paroxysmal nocturnal haemoglobinuria [Recovering/Resolving]
  - Condition aggravated [Recovering/Resolving]
  - Infected vasculitis [Recovering/Resolving]
  - Hepatic function abnormal [Recovering/Resolving]
  - Renal mass [Recovering/Resolving]
  - Productive cough [Recovered/Resolved]
  - Blood uric acid increased [Recovering/Resolving]
  - Insomnia [Recovered/Resolved]
  - Constipation [Recovered/Resolved]
  - Arthralgia [Recovering/Resolving]

NARRATIVE: CASE EVENT DATE: 20200205
